FAERS Safety Report 21718408 (Version 1)
Quarter: 2022Q4

REPORT INFORMATION
  Report Type: Spontaneous
  Country: US (occurrence: None)
  Receive Date: 20221212
  Receipt Date: 20221212
  Transmission Date: 20230113
  Serious: Yes (Other)
  Sender: FDA-Public Use
  Company Number: US-Unichem Pharmaceuticals (USA) Inc-UCM202212-001288

PATIENT
  Age: 55 Year
  Sex: Female

DRUGS (3)
  1. TRAMADOL HCL [Suspect]
     Active Substance: TRAMADOL HYDROCHLORIDE
     Indication: Neuropathy peripheral
     Dosage: UNKNOWN
  2. GABAPENTIN [Suspect]
     Active Substance: GABAPENTIN
     Indication: Neuropathy peripheral
     Dosage: UNKNOWN
  3. PREGABALIN [Suspect]
     Active Substance: PREGABALIN
     Indication: Neuropathy peripheral
     Dosage: UNKNOWN

REACTIONS (3)
  - Lupus-like syndrome [Unknown]
  - Condition aggravated [Unknown]
  - Drug ineffective [Unknown]
